FAERS Safety Report 6856807-4 (Version None)
Quarter: 2010Q3

REPORT INFORMATION
  Report Type: 
  Country: None (occurrence: None)
  Receive Date: 20100714
  Receipt Date: 20100629
  Transmission Date: 20110219
  Serious: Yes (Other)
  Sender: FDA-Public Use
  Company Number: PHBS2006SE16252

PATIENT

DRUGS (1)
  1. VERTEPORFIN (BATCH #: UNKNOWN) [Suspect]
     Dosage: IV
     Route: 042

REACTIONS (1)
  - MYOCARDIAL INFARCTION [None]
